FAERS Safety Report 24374543 (Version 2)
Quarter: 2024Q4

REPORT INFORMATION
  Report Type: Spontaneous
  Country: GH (occurrence: GH)
  Receive Date: 20240927
  Receipt Date: 20241024
  Transmission Date: 20250115
  Serious: Yes (Hospitalization)
  Sender: GE HEALTHCARE
  Company Number: GH-GE HEALTHCARE-2024CSU010782

PATIENT
  Sex: Male

DRUGS (1)
  1. OMNIPAQUE [Suspect]
     Active Substance: IOHEXOL
     Indication: Computerised tomogram head
     Dosage: 40 ML, TOTAL
     Route: 042
     Dates: start: 20240716, end: 20240716

REACTIONS (4)
  - Hypoglycaemia [Recovered/Resolved]
  - Tremor [Recovered/Resolved]
  - Asthenia [Recovered/Resolved]
  - Urticaria [Recovered/Resolved]

NARRATIVE: CASE EVENT DATE: 20240716
